FAERS Safety Report 11406287 (Version 1)
Quarter: 2015Q3

REPORT INFORMATION
  Report Type: Spontaneous
  Country: JP (occurrence: JP)
  Receive Date: 20150821
  Receipt Date: 20150821
  Transmission Date: 20151125
  Serious: Yes (Other)
  Sender: FDA-Public Use
  Company Number: JP-PFIZER INC-2015275929

PATIENT
  Sex: Female

DRUGS (2)
  1. DETRUSITOL [Suspect]
     Active Substance: TOLTERODINE TARTRATE
     Indication: POLLAKIURIA
     Dosage: 2 MG, 2X/DAY (IN THE MORNING AND EVENING)
     Route: 048
     Dates: start: 2015, end: 2015
  2. VESICARE [Concomitant]
     Active Substance: SOLIFENACIN SUCCINATE
     Indication: POLLAKIURIA
     Dosage: UNK, 1X/DAY
     Route: 048

REACTIONS (4)
  - Constipation [Not Recovered/Not Resolved]
  - Product use issue [Unknown]
  - Abdominal distension [Not Recovered/Not Resolved]
  - Urinary retention [Not Recovered/Not Resolved]

NARRATIVE: CASE EVENT DATE: 2015
